FAERS Safety Report 25719404 (Version 3)
Quarter: 2025Q3

REPORT INFORMATION
  Report Type: Report from Study
  Country: US (occurrence: US)
  Receive Date: 20250824
  Receipt Date: 20250922
  Transmission Date: 20251021
  Serious: No
  Sender: AMGEN
  Company Number: US-AMGEN-USASL2025167904

PATIENT
  Age: 62 Year
  Sex: Female
  Weight: 49 kg

DRUGS (2)
  1. NEULASTA [Suspect]
     Active Substance: PEGFILGRASTIM
     Indication: Neutropenia
     Route: 058
     Dates: start: 20250820
  2. NEULASTA [Suspect]
     Active Substance: PEGFILGRASTIM
     Route: 058

REACTIONS (1)
  - Device adhesion issue [Recovered/Resolved]

NARRATIVE: CASE EVENT DATE: 20250821
